FAERS Safety Report 15868545 (Version 2)
Quarter: 2019Q3

REPORT INFORMATION
  Report Type: Spontaneous
  Country: CN (occurrence: CN)
  Receive Date: 20190125
  Receipt Date: 20190725
  Transmission Date: 20191004
  Serious: Yes (Other)
  Sender: FDA-Public Use
  Company Number: CN-JNJFOC-20190122835

PATIENT

DRUGS (1)
  1. HUMAN THROMBIN [Suspect]
     Active Substance: THROMBIN HUMAN
     Indication: HAEMOSTASIS
     Route: 065

REACTIONS (1)
  - Venous thrombosis [Unknown]
